FAERS Safety Report 13924437 (Version 3)
Quarter: 2024Q1

REPORT INFORMATION
  Report Type: Report from Study
  Country: CO (occurrence: CO)
  Receive Date: 20170831
  Receipt Date: 20240229
  Transmission Date: 20240409
  Serious: Yes (Hospitalization, Other)
  Sender: FDA-Public Use
  Company Number: PHHY2017CO127426

PATIENT
  Age: 60 Year
  Sex: Female
  Weight: 66 kg

DRUGS (4)
  1. GILENYA [Suspect]
     Active Substance: FINGOLIMOD HYDROCHLORIDE
     Indication: Multiple sclerosis
     Dosage: 0.5 MG, QD
     Route: 048
     Dates: start: 20131228
  2. VITAMIN D [Concomitant]
     Active Substance: VITAMIN D NOS
     Indication: Product used for unknown indication
     Dosage: 1 DOSAGE FORM, QD
     Route: 065
  3. FISH OIL [Concomitant]
     Active Substance: FISH OIL
     Indication: Product used for unknown indication
     Dosage: 1 DOSAGE FORM, QD
     Route: 065
  4. VITAMIN E [Concomitant]
     Active Substance: .ALPHA.-TOCOPHEROL
     Indication: Product used for unknown indication
     Dosage: 1 DOSAGE FORM, QD
     Route: 065

REACTIONS (12)
  - Urinary tract infection [Not Recovered/Not Resolved]
  - Chills [Unknown]
  - Headache [Unknown]
  - Pyrexia [Unknown]
  - Pain [Recovering/Resolving]
  - Balance disorder [Unknown]
  - Muscular weakness [Unknown]
  - Pain in extremity [Not Recovered/Not Resolved]
  - Irritable bowel syndrome [Unknown]
  - Cystocele [Unknown]
  - Multiple sclerosis relapse [Unknown]
  - Visual impairment [Unknown]

NARRATIVE: CASE EVENT DATE: 20231101
